FAERS Safety Report 7162005-X (Version None)
Quarter: 2010Q4

REPORT INFORMATION
  Report Type: 
  Country: None (occurrence: None)
  Receive Date: 20101215
  Receipt Date: 20100817
  Transmission Date: 20110411
  Serious: Yes (Hospitalization, Other)
  Sender: FDA-Public Use
  Company Number: JP-PFIZER INC-2010080494

PATIENT
  Age: 74 Year
  Sex: Male
  Weight: 60 kg

DRUGS (11)
  1. LYRICA [Suspect]
     Indication: POST HERPETIC NEURALGIA
     Dosage: 75 MG, 2X/DAY
     Route: 048
     Dates: start: 20100623, end: 20100625
  2. PREDONINE [Concomitant]
     Indication: POLYMYALGIA RHEUMATICA
     Dosage: UNK
     Route: 048
     Dates: start: 20100102
  3. ARTIST [Concomitant]
     Dosage: UNK
     Route: 048
  4. BLOPRESS [Concomitant]
     Dosage: UNK
     Route: 048
  5. URINORM [Concomitant]
     Dosage: UNK
     Route: 048
  6. LASIX [Concomitant]
     Dosage: UNK
     Route: 048
  7. CODEINE PHOSPHATE [Concomitant]
     Indication: POST HERPETIC NEURALGIA
     Dosage: 3 G, 3X/DAY
     Route: 048
  8. LORCAM [Concomitant]
     Indication: BACK PAIN
     Dosage: 4 MG, 2X/DAY
     Route: 048
     Dates: start: 20100621
  9. LOXOPROFEN SODIUM [Concomitant]
     Indication: HERPES ZOSTER
  10. AMITRIPTYLINE HCL [Concomitant]
     Indication: HERPES ZOSTER
  11. NEUROTROPIN [Concomitant]
     Indication: HERPES ZOSTER

REACTIONS (21)
  - ALTERED STATE OF CONSCIOUSNESS [None]
  - ASPARTATE AMINOTRANSFERASE INCREASED [None]
  - ASTHENIA [None]
  - BLOOD CREATINE PHOSPHOKINASE INCREASED [None]
  - BLOOD CREATININE INCREASED [None]
  - BLOOD LACTATE DEHYDROGENASE INCREASED [None]
  - BLOOD POTASSIUM INCREASED [None]
  - BLOOD UREA INCREASED [None]
  - BLOOD URIC ACID INCREASED [None]
  - CERVICAL VERTEBRAL FRACTURE [None]
  - FALL [None]
  - HAEMORRHAGE SUBCUTANEOUS [None]
  - HYPOAESTHESIA [None]
  - HYPOXIA [None]
  - MUSCLE DISORDER [None]
  - MYOGLOBIN BLOOD PRESENT [None]
  - OPTIC NERVE DISORDER [None]
  - RENAL DISORDER [None]
  - RENAL IMPAIRMENT [None]
  - RESTLESSNESS [None]
  - SPEECH DISORDER [None]
